FAERS Safety Report 4667443-2 (Version None)
Quarter: 2005Q2

REPORT INFORMATION
  Report Type: 
  Country: None (occurrence: None)
  Receive Date: 20050519
  Receipt Date: 20050519
  Transmission Date: 20051028
  Serious: Yes (Hospitalization)
  Sender: FDA-Public Use
  Company Number: None

PATIENT
  Age: 49 Year
  Sex: Female
  Weight: 68.2664 kg

DRUGS (8)
  1. ASACOL [Suspect]
     Indication: CROHN'S DISEASE
     Dates: start: 20050409, end: 20050426
  2. GLUCOPHAGE [Concomitant]
  3. PROTONIX [Concomitant]
  4. CELEBREX [Concomitant]
  5. DIOVAN HCT [Concomitant]
  6. ESTROVEN [Concomitant]
  7. CALCIUM+D [Concomitant]
  8. ACYCLOVIR [Concomitant]

REACTIONS (7)
  - ABDOMINAL PAIN [None]
  - BACK PAIN [None]
  - FLUID INTAKE REDUCED [None]
  - FOOD INTOLERANCE [None]
  - GASTROINTESTINAL INFLAMMATION [None]
  - GASTROINTESTINAL OEDEMA [None]
  - VOMITING [None]
